FAERS Safety Report 5971493-3 (Version None)
Quarter: 2008Q4

REPORT INFORMATION
  Report Type: 
  Country: None (occurrence: None)
  Receive Date: 20081201
  Receipt Date: 20081126
  Transmission Date: 20090506
  Serious: Yes (Other)
  Sender: FDA-Public Use
  Company Number: DE-BRISTOL-MYERS SQUIBB COMPANY-14074504

PATIENT
  Age: 45 Year
  Sex: Female

DRUGS (1)
  1. BESPAR [Suspect]
     Indication: ANXIETY
     Route: 048

REACTIONS (3)
  - ABORTION INDUCED [None]
  - ANXIETY DISORDER [None]
  - PREGNANCY [None]
